FAERS Safety Report 17083632 (Version 3)
Quarter: 2020Q1

REPORT INFORMATION
  Report Type: Spontaneous
  Country: US (occurrence: US)
  Receive Date: 20191127
  Receipt Date: 20200306
  Transmission Date: 20200409
  Serious: No
  Sender: FDA-Public Use
  Company Number: NVSC2019US049832

PATIENT
  Sex: Female
  Weight: 89.81 kg

DRUGS (2)
  1. ZOFRAN ODT [Suspect]
     Active Substance: ONDANSETRON HYDROCHLORIDE
     Indication: MORNING SICKNESS
     Dosage: 04 MG
     Route: 048
     Dates: start: 20120217
  2. ZOFRAN [Suspect]
     Active Substance: ONDANSETRON HYDROCHLORIDE
     Indication: MORNING SICKNESS
     Dosage: 04 MG, QD
     Route: 048
     Dates: start: 20120215, end: 201208

REACTIONS (10)
  - Pain [Unknown]
  - Urinary tract infection [Unknown]
  - Anhedonia [Unknown]
  - Anxiety [Unknown]
  - Pre-eclampsia [Unknown]
  - Headache [Unknown]
  - Maternal exposure during pregnancy [Unknown]
  - Product use in unapproved indication [Unknown]
  - Emotional distress [Unknown]
  - Abdominal pain upper [Unknown]
